FAERS Safety Report 6236926-6 (Version None)
Quarter: 2009Q2

REPORT INFORMATION
  Report Type: 
  Country: None (occurrence: None)
  Receive Date: 20090619
  Receipt Date: 20090223
  Transmission Date: 20091009
  Serious: No
  Sender: FDA-Public Use
  Company Number: US-ASTRAZENECA-2009UW01313

PATIENT
  Age: 75 Year
  Sex: Female

DRUGS (13)
  1. SYMBICORT [Suspect]
     Indication: ASTHMA
     Dosage: 160/4.5 UG, 2 PUFFS, ONCE A DAY
     Route: 055
  2. SYMBICORT [Suspect]
     Dosage: 160/4.5 UG TWO PUFFS IN THE MORNING
     Route: 055
  3. SINGULAIR [Concomitant]
  4. ALPRAZOLAM [Concomitant]
  5. LEXAPRO [Concomitant]
  6. NASONEX [Concomitant]
  7. PULMICORT RESPULES [Concomitant]
  8. IPRATROPIUM BROMIDE [Concomitant]
  9. ALBUTEROL SULFATE [Concomitant]
  10. OMEPRAZOLE [Concomitant]
  11. METHOTREXATE [Concomitant]
  12. NASAL SPRAY [Concomitant]
  13. BONIVA [Concomitant]

REACTIONS (2)
  - EYE DISORDER [None]
  - INSOMNIA [None]
